FAERS Safety Report 15853306 (Version 2)
Quarter: 2019Q1

REPORT INFORMATION
  Report Type: Spontaneous
  Country: US (occurrence: US)
  Receive Date: 20190122
  Receipt Date: 20190221
  Transmission Date: 20190417
  Serious: No
  Sender: FDA-Public Use
  Company Number: US-GLAXOSMITHKLINE-US2019004783

PATIENT
  Age: 67 Year
  Sex: Male

DRUGS (1)
  1. ANORO ELLIPTA [Suspect]
     Active Substance: UMECLIDINIUM BROMIDE\VILANTEROL TRIFENATATE
     Indication: PRODUCT USED FOR UNKNOWN INDICATION
     Dosage: 3 PUFF(S), QD
     Dates: start: 20190110

REACTIONS (2)
  - Product complaint [Unknown]
  - Overdose [Unknown]

NARRATIVE: CASE EVENT DATE: 20190110
